FAERS Safety Report 4368566-8 (Version None)
Quarter: 2004Q2

REPORT INFORMATION
  Report Type: 
  Country: None (occurrence: None)
  Receive Date: 20040602
  Receipt Date: 20040512
  Transmission Date: 20050107
  Serious: Yes (Other)
  Sender: FDA-Public Use
  Company Number: BE-JNJFOC-20040502801

PATIENT
  Age: 55 Year
  Sex: Male

DRUGS (1)
  1. PREPULSID (CISAPRIDE) TABLETS [Suspect]
     Indication: IMPAIRED GASTRIC EMPTYING
     Dosage: 10 MG, 4 IN 1 DAY, ORAL
     Route: 048
     Dates: start: 20040201, end: 20040301

REACTIONS (1)
  - CYANOSIS [None]
